FAERS Safety Report 6658627-2 (Version None)
Quarter: 2010Q1

REPORT INFORMATION
  Report Type: 
  Country: None (occurrence: None)
  Receive Date: 20100330
  Receipt Date: 20100324
  Transmission Date: 20100710
  Serious: Yes (Hospitalization, Disabling, Other)
  Sender: FDA-Public Use
  Company Number: FR-BRISTOL-MYERS SQUIBB COMPANY-15022387

PATIENT
  Age: 59 Year
  Sex: Male
  Weight: 103 kg

DRUGS (3)
  1. GLUCOVANCE [Suspect]
     Indication: TYPE 2 DIABETES MELLITUS
     Dosage: MID DEC,1.5YRS AGO
     Route: 048
     Dates: start: 20070101, end: 20091201
  2. ACTOS [Suspect]
     Indication: TYPE 2 DIABETES MELLITUS
     Dosage: MID DEC
     Route: 048
     Dates: start: 20070101, end: 20091201
  3. BYETTA [Suspect]
     Indication: TYPE 2 DIABETES MELLITUS
     Route: 058
     Dates: start: 20070101, end: 20091201

REACTIONS (3)
  - GASTROINTESTINAL HAEMORRHAGE [None]
  - MYOPATHY [None]
  - SHOCK HAEMORRHAGIC [None]
